FAERS Safety Report 4847194-1 (Version None)
Quarter: 2005Q4

REPORT INFORMATION
  Report Type: 
  Country: None (occurrence: None)
  Receive Date: 20051207
  Receipt Date: 20051005
  Transmission Date: 20060501
  Serious: Yes (Hospitalization)
  Sender: FDA-Public Use
  Company Number: US-MERCK-0510USA04251

PATIENT
  Age: 71 Year
  Sex: Male
  Weight: 84 kg

DRUGS (6)
  1. VIOXX [Suspect]
     Indication: ARTHRALGIA
     Route: 048
     Dates: start: 19990101, end: 20040930
  2. HYZAAR [Concomitant]
     Route: 065
  3. ZANTAC [Concomitant]
     Route: 065
  4. LIPITOR [Concomitant]
     Route: 065
  5. PAXIL [Concomitant]
     Route: 065
  6. METOPROLOL [Concomitant]
     Route: 065

REACTIONS (1)
  - CARDIOVASCULAR DISORDER [None]
